APPROVED DRUG PRODUCT: SUNLENCA
Active Ingredient: LENACAPAVIR SODIUM
Strength: EQ 463.5MG BASE/1.5ML (EQ 309MG BASE/ML)
Dosage Form/Route: SOLUTION;SUBCUTANEOUS
Application: N215973 | Product #001
Applicant: GILEAD SCIENCES INC
Approved: Dec 22, 2022 | RLD: Yes | RS: Yes | Type: RX

PATENTS:
Patent 11944611 | Expires: Aug 28, 2041
Patent 10654827 | Expires: Aug 17, 2037
Patent 9951043 | Expires: Feb 28, 2034
Patent 10071985 | Expires: Aug 17, 2037
Patent 11267799 | Expires: Aug 16, 2038

EXCLUSIVITY:
Code: NCE | Date: Dec 22, 2027